FAERS Safety Report 15853887 (Version 2)
Quarter: 2019Q1

REPORT INFORMATION
  Report Type: Report from Study
  Country: FR (occurrence: FR)
  Receive Date: 20190122
  Receipt Date: 20190220
  Transmission Date: 20190417
  Serious: Yes (Hospitalization)
  Sender: FDA-Public Use
  Company Number: FR-BAYER-2019-014052

PATIENT
  Age: 61 Year
  Sex: Male
  Weight: 73 kg

DRUGS (4)
  1. AVELUMAB [Suspect]
     Active Substance: AVELUMAB
     Indication: GASTROINTESTINAL CARCINOMA
     Dosage: 680 MG, QD
     Route: 042
     Dates: start: 20181227, end: 20181227
  2. AVELUMAB [Suspect]
     Active Substance: AVELUMAB
     Indication: GASTROINTESTINAL CARCINOMA
     Dosage: 780 MG, QD
     Route: 042
     Dates: start: 20190125, end: 20190125
  3. AMOXICILLINA [Concomitant]
     Active Substance: AMOXICILLIN
     Indication: INFECTION PROPHYLAXIS
     Dosage: UNK
     Route: 048
     Dates: start: 2019
  4. REGORAFENIB. [Suspect]
     Active Substance: REGORAFENIB
     Indication: GASTROINTESTINAL CARCINOMA
     Dosage: DAILY DOSE 160 MG
     Route: 048
     Dates: start: 20181213, end: 20190201

REACTIONS (2)
  - Gastrointestinal ulcer [Recovered/Resolved with Sequelae]
  - General physical health deterioration [Not Recovered/Not Resolved]

NARRATIVE: CASE EVENT DATE: 20190206
